FAERS Safety Report 7887880-2 (Version None)
Quarter: 2011Q4

REPORT INFORMATION
  Report Type: 
  Country: None (occurrence: None)
  Receive Date: 20111103
  Receipt Date: 20111103
  Transmission Date: 20120403
  Serious: Yes (Life-Threatening, Hospitalization, Disabling)
  Sender: FDA-Public Use
  Company Number: None

PATIENT
  Age: 10 Year
  Sex: Female
  Weight: 32.8 kg

DRUGS (2)
  1. BACTRIM [Suspect]
     Indication: CELLULITIS
     Dosage: 10ML
     Route: 048
     Dates: start: 20111001, end: 20111010
  2. BACTRIM [Suspect]
     Indication: IMPLANT SITE INFECTION
     Dosage: 10ML
     Route: 048
     Dates: start: 20111001, end: 20111010

REACTIONS (4)
  - DYSURIA [None]
  - VOMITING [None]
  - TOXIC EPIDERMAL NECROLYSIS [None]
  - HYPERGLYCAEMIA [None]
